FAERS Safety Report 6447413-4 (Version None)
Quarter: 2009Q4

REPORT INFORMATION
  Report Type: 
  Country: None (occurrence: None)
  Receive Date: 20091119
  Receipt Date: 20081205
  Transmission Date: 20100525
  Serious: Yes (Hospitalization)
  Sender: FDA-Public Use
  Company Number: US-AMGEN-QUU313464

PATIENT
  Sex: Female

DRUGS (1)
  1. ENBREL [Suspect]
     Indication: RHEUMATOID ARTHRITIS
     Route: 058
     Dates: start: 19990101, end: 20080902

REACTIONS (7)
  - ARTHRALGIA [None]
  - BACK PAIN [None]
  - CELLULITIS [None]
  - EXTERNAL EAR CELLULITIS [None]
  - LOCALISED INFECTION [None]
  - RHEUMATOID ARTHRITIS [None]
  - WOUND COMPLICATION [None]
